FAERS Safety Report 23638444 (Version 1)
Quarter: 2024Q1

REPORT INFORMATION
  Report Type: Spontaneous
  Country: US (occurrence: US)
  Receive Date: 20240315
  Receipt Date: 20240315
  Transmission Date: 20240409
  Serious: No
  Sender: FDA-Public Use
  Company Number: US-GSK-US2024AMR031178

PATIENT

DRUGS (2)
  1. FLUTICASONE PROPIONATE [Suspect]
     Active Substance: FLUTICASONE PROPIONATE
     Indication: Sinusitis
     Dosage: UNK
     Dates: start: 20240104
  2. LEVOFLOXACIN [Suspect]
     Active Substance: LEVOFLOXACIN
     Indication: Sinusitis
     Dosage: UNK
     Dates: start: 20240104

REACTIONS (7)
  - Ear discomfort [Unknown]
  - Vertigo [Recovered/Resolved]
  - Vomiting [Recovered/Resolved]
  - Sinusitis [Unknown]
  - Nasal congestion [Recovered/Resolved]
  - Influenza [Unknown]
  - Product use in unapproved indication [Unknown]

NARRATIVE: CASE EVENT DATE: 20240109
